FAERS Safety Report 7867358-2 (Version None)
Quarter: 2011Q4

REPORT INFORMATION
  Report Type: 
  Country: None (occurrence: None)
  Receive Date: 20111028
  Receipt Date: 20111024
  Transmission Date: 20120403
  Serious: Yes (Hospitalization, Other)
  Sender: FDA-Public Use
  Company Number: FR-BRISTOL-MYERS SQUIBB COMPANY-16076499

PATIENT
  Age: 45 Year
  Sex: Male
  Weight: 90 kg

DRUGS (5)
  1. NEXIUM [Concomitant]
     Indication: GASTROOESOPHAGEAL REFLUX DISEASE
     Dosage: TABLET
  2. IPILIMUMAB [Suspect]
     Indication: MALIGNANT MELANOMA
     Dosage: 3RD INF:0C62102.0F  4TH INF:0C62102.0G;NO OF INFUSION RECEIVED-4.4TH INF ON 30DEC10(DOSE:270MG)
     Route: 042
  3. IMODIUM [Concomitant]
     Indication: DIARRHOEA
  4. ACETAMINOPHEN [Concomitant]
     Indication: ANALGESIC THERAPY
     Dosage: TABLETS MAXIMUM 3 G PER DAY
  5. ATARAX [Concomitant]
     Dosage: TABLET

REACTIONS (4)
  - COLITIS [None]
  - DIARRHOEA [None]
  - ABDOMINAL PAIN [None]
  - MOUTH ULCERATION [None]
